FAERS Safety Report 17022483 (Version 1)
Quarter: 2019Q4

REPORT INFORMATION
  Report Type: Report from Study
  Country: KW (occurrence: KW)
  Receive Date: 20191112
  Receipt Date: 20191112
  Transmission Date: 20200122
  Serious: Yes (Hospitalization, Other)
  Sender: FDA-Public Use
  Company Number: KW-JNJFOC-20191002156

PATIENT
  Age: 18 Year
  Sex: Male

DRUGS (1)
  1. STELARA [Suspect]
     Active Substance: USTEKINUMAB
     Indication: CROHN^S DISEASE
     Route: 058
     Dates: start: 20190116

REACTIONS (4)
  - Rectal haemorrhage [Unknown]
  - Constipation [Not Recovered/Not Resolved]
  - Abdominal pain [Recovered/Resolved]
  - Colectomy [Unknown]

NARRATIVE: CASE EVENT DATE: 20190916
